FAERS Safety Report 19904749 (Version 1)
Quarter: 2021Q4

REPORT INFORMATION
  Report Type: Spontaneous
  Country: CA (occurrence: CA)
  Receive Date: 20211001
  Receipt Date: 20211001
  Transmission Date: 20220303
  Serious: Yes (Hospitalization)
  Sender: FDA-Public Use
  Company Number: CA-TEVA-2021-CA-1959185

PATIENT
  Age: 77 Year
  Sex: Female

DRUGS (4)
  1. IRINOTECAN HYDROCHLORIDE [Suspect]
     Active Substance: IRINOTECAN HYDROCHLORIDE
     Route: 065
  2. IRINOTECAN HYDROCHLORIDE [Suspect]
     Active Substance: IRINOTECAN HYDROCHLORIDE
     Route: 065
  3. LEUCOVORIN [Suspect]
     Active Substance: LEUCOVORIN
     Route: 065
  4. FLUOROURACIL [Suspect]
     Active Substance: FLUOROURACIL
     Route: 065

REACTIONS (5)
  - Blood electrolytes decreased [Unknown]
  - Colitis [Unknown]
  - Diarrhoea [Unknown]
  - Escherichia urinary tract infection [Unknown]
  - Large intestine infection [Unknown]
